FAERS Safety Report 25034878 (Version 1)
Quarter: 2025Q1

REPORT INFORMATION
  Report Type: Spontaneous
  Country: US (occurrence: US)
  Receive Date: 20250304
  Receipt Date: 20250304
  Transmission Date: 20250409
  Serious: Yes (Other)
  Sender: BRISTOL-MYERS SQUIBB COMPANY
  Company Number: US-BRISTOL-MYERS SQUIBB COMPANY-2025-026965

PATIENT
  Age: 62 Year
  Sex: Male

DRUGS (67)
  1. ABRAXANE [Suspect]
     Active Substance: PACLITAXEL
     Indication: Malignant neoplasm progression
     Dates: start: 20200303
  2. ABRAXANE [Suspect]
     Active Substance: PACLITAXEL
     Indication: Pancreatic carcinoma metastatic
     Dates: start: 20200414
  3. ABRAXANE [Suspect]
     Active Substance: PACLITAXEL
     Dates: start: 20200714
  4. ABRAXANE [Suspect]
     Active Substance: PACLITAXEL
     Dates: start: 202008
  5. ABRAXANE [Suspect]
     Active Substance: PACLITAXEL
     Dates: start: 20200721
  6. ABRAXANE [Suspect]
     Active Substance: PACLITAXEL
     Dates: start: 20200310
  7. ABRAXANE [Suspect]
     Active Substance: PACLITAXEL
     Dates: start: 20200324
  8. ABRAXANE [Suspect]
     Active Substance: PACLITAXEL
     Dates: start: 20200401
  9. ABRAXANE [Suspect]
     Active Substance: PACLITAXEL
     Dates: start: 20200424
  10. ABRAXANE [Suspect]
     Active Substance: PACLITAXEL
     Dates: start: 20200505
  11. ABRAXANE [Suspect]
     Active Substance: PACLITAXEL
     Dates: start: 20200512
  12. ABRAXANE [Suspect]
     Active Substance: PACLITAXEL
     Dates: start: 20200526
  13. ABRAXANE [Suspect]
     Active Substance: PACLITAXEL
     Dates: start: 20200602
  14. ABRAXANE [Suspect]
     Active Substance: PACLITAXEL
     Dates: start: 20200616
  15. ABRAXANE [Suspect]
     Active Substance: PACLITAXEL
     Dates: start: 20200622
  16. ALDOXORUBICIN [Suspect]
     Active Substance: ALDOXORUBICIN
     Indication: Pancreatic carcinoma metastatic
     Dates: start: 20200306
  17. ALDOXORUBICIN [Suspect]
     Active Substance: ALDOXORUBICIN
     Indication: Malignant neoplasm progression
     Dates: start: 20200327
  18. ALDOXORUBICIN [Suspect]
     Active Substance: ALDOXORUBICIN
     Dates: start: 20200508
  19. ALDOXORUBICIN [Suspect]
     Active Substance: ALDOXORUBICIN
     Dates: start: 20200529
  20. ALDOXORUBICIN [Suspect]
     Active Substance: ALDOXORUBICIN
     Dates: start: 20200619
  21. CYCLOPHOSPHAMIDE [Suspect]
     Active Substance: CYCLOPHOSPHAMIDE
     Indication: Pancreatic carcinoma metastatic
     Route: 048
     Dates: start: 20200303
  22. CYCLOPHOSPHAMIDE [Suspect]
     Active Substance: CYCLOPHOSPHAMIDE
     Indication: Malignant neoplasm progression
     Route: 048
     Dates: start: 20200310
  23. CYCLOPHOSPHAMIDE [Suspect]
     Active Substance: CYCLOPHOSPHAMIDE
     Route: 048
     Dates: start: 20200324
  24. CYCLOPHOSPHAMIDE [Suspect]
     Active Substance: CYCLOPHOSPHAMIDE
     Route: 048
     Dates: start: 20200401
  25. CYCLOPHOSPHAMIDE [Suspect]
     Active Substance: CYCLOPHOSPHAMIDE
     Route: 048
     Dates: start: 20200414
  26. CYCLOPHOSPHAMIDE [Suspect]
     Active Substance: CYCLOPHOSPHAMIDE
     Route: 048
     Dates: start: 20200505
  27. CYCLOPHOSPHAMIDE [Suspect]
     Active Substance: CYCLOPHOSPHAMIDE
     Route: 048
     Dates: start: 20200512
  28. CISPLATIN [Suspect]
     Active Substance: CISPLATIN
     Indication: Pancreatic carcinoma metastatic
     Dates: start: 20200714
  29. CISPLATIN [Suspect]
     Active Substance: CISPLATIN
     Indication: Malignant neoplasm progression
     Dates: start: 20200721
  30. GEMCITABINE [Suspect]
     Active Substance: GEMCITABINE
     Indication: Pancreatic carcinoma metastatic
     Route: 042
     Dates: start: 20200303
  31. GEMCITABINE [Suspect]
     Active Substance: GEMCITABINE
     Indication: Malignant neoplasm progression
     Route: 042
     Dates: start: 20200414
  32. GEMCITABINE [Suspect]
     Active Substance: GEMCITABINE
     Route: 042
     Dates: start: 20200714
  33. GEMCITABINE [Suspect]
     Active Substance: GEMCITABINE
     Route: 042
     Dates: start: 202008
  34. GEMCITABINE [Suspect]
     Active Substance: GEMCITABINE
     Route: 042
     Dates: start: 20200721
  35. GEMCITABINE [Suspect]
     Active Substance: GEMCITABINE
     Route: 042
     Dates: start: 20200310
  36. GEMCITABINE [Suspect]
     Active Substance: GEMCITABINE
     Route: 042
     Dates: start: 20200324
  37. GEMCITABINE [Suspect]
     Active Substance: GEMCITABINE
     Route: 042
     Dates: start: 20200401
  38. GEMCITABINE [Suspect]
     Active Substance: GEMCITABINE
     Route: 042
     Dates: start: 20200424
  39. GEMCITABINE [Suspect]
     Active Substance: GEMCITABINE
     Route: 042
     Dates: start: 20200505
  40. GEMCITABINE [Suspect]
     Active Substance: GEMCITABINE
     Route: 042
     Dates: start: 20200512
  41. GEMCITABINE [Suspect]
     Active Substance: GEMCITABINE
     Route: 042
     Dates: start: 20200526
  42. GEMCITABINE [Suspect]
     Active Substance: GEMCITABINE
     Route: 042
     Dates: start: 20200602
  43. GEMCITABINE [Suspect]
     Active Substance: GEMCITABINE
     Route: 042
     Dates: start: 20200616
  44. GEMCITABINE [Suspect]
     Active Substance: GEMCITABINE
     Route: 042
     Dates: start: 20200622
  45. ANKTIVA [Suspect]
     Active Substance: NOGAPENDEKIN ALFA INBAKICEPT-PMLN
     Indication: Pancreatic carcinoma metastatic
     Route: 058
     Dates: start: 20200818
  46. ANKTIVA [Suspect]
     Active Substance: NOGAPENDEKIN ALFA INBAKICEPT-PMLN
     Indication: Malignant neoplasm progression
     Route: 058
     Dates: start: 20200909
  47. ANKTIVA [Suspect]
     Active Substance: NOGAPENDEKIN ALFA INBAKICEPT-PMLN
     Route: 058
     Dates: start: 20200306
  48. ANKTIVA [Suspect]
     Active Substance: NOGAPENDEKIN ALFA INBAKICEPT-PMLN
     Route: 058
     Dates: start: 20200327
  49. ANKTIVA [Suspect]
     Active Substance: NOGAPENDEKIN ALFA INBAKICEPT-PMLN
     Route: 058
     Dates: start: 20200417
  50. ANKTIVA [Suspect]
     Active Substance: NOGAPENDEKIN ALFA INBAKICEPT-PMLN
     Route: 058
     Dates: start: 20200508
  51. ANKTIVA [Suspect]
     Active Substance: NOGAPENDEKIN ALFA INBAKICEPT-PMLN
     Route: 058
     Dates: start: 20200529
  52. ANKTIVA [Suspect]
     Active Substance: NOGAPENDEKIN ALFA INBAKICEPT-PMLN
     Route: 058
     Dates: start: 20200619
  53. PD-L1 T-HANK [Concomitant]
     Indication: Pancreatic carcinoma metastatic
     Route: 042
     Dates: start: 20200818
  54. PD-L1 T-HANK [Concomitant]
     Route: 042
     Dates: start: 20200909
  55. PD-L1 T-HANK [Concomitant]
     Route: 042
     Dates: start: 20200306
  56. PD-L1 T-HANK [Concomitant]
     Route: 042
     Dates: start: 20200313
  57. PD-L1 T-HANK [Concomitant]
     Route: 042
     Dates: start: 20200327
  58. PD-L1 T-HANK [Concomitant]
     Route: 042
     Dates: start: 20200403
  59. PD-L1 T-HANK [Concomitant]
     Route: 042
     Dates: start: 20200424
  60. PD-L1 T-HANK [Concomitant]
     Route: 042
     Dates: start: 20200428
  61. PD-L1 T-HANK [Concomitant]
     Route: 042
     Dates: start: 20200508
  62. PD-L1 T-HANK [Concomitant]
     Route: 042
     Dates: start: 20200515
  63. PD-L1 T-HANK [Concomitant]
     Route: 042
     Dates: start: 20200529
  64. PD-L1 T-HANK [Concomitant]
     Route: 042
     Dates: start: 20200605
  65. PD-L1 T-HANK [Concomitant]
     Route: 042
     Dates: start: 20200619
  66. PD-L1 T-HANK [Concomitant]
     Route: 042
     Dates: start: 20200623
  67. PEMBROLIZUMAB [Concomitant]
     Active Substance: PEMBROLIZUMAB
     Indication: Pancreatic carcinoma metastatic
     Route: 042
     Dates: start: 20200721

REACTIONS (4)
  - Pyrexia [Unknown]
  - Chills [Unknown]
  - Nausea [Unknown]
  - Neutropenia [Unknown]

NARRATIVE: CASE EVENT DATE: 20200101
